FAERS Safety Report 8255125-X (Version None)
Quarter: 2012Q1

REPORT INFORMATION
  Report Type: 
  Country: None (occurrence: None)
  Receive Date: 20120330
  Receipt Date: 20120323
  Transmission Date: 20120608
  Serious: Yes (Disabling)
  Sender: FDA-Public Use
  Company Number: 2012SP005291

PATIENT
  Age: 37 Year
  Sex: Female
  Weight: 94.8018 kg

DRUGS (7)
  1. OMEPRAZOLE [Concomitant]
  2. PRILOSEC [Concomitant]
  3. ASCORBIC ACID [Concomitant]
  4. KLONOPIN [Concomitant]
  5. VITAMIN B COMPLEX CAP [Concomitant]
  6. NUVARING [Suspect]
     Indication: CONTRACEPTION
     Dosage: 1 DF, QM, VAG
     Route: 067
     Dates: start: 20090901, end: 20120127
  7. PAXIL [Concomitant]

REACTIONS (19)
  - METRORRHAGIA [None]
  - PAIN [None]
  - RASH [None]
  - BLOOD IMMUNOGLOBULIN G INCREASED [None]
  - VITAMIN B12 DEFICIENCY [None]
  - MENSTRUAL DISORDER [None]
  - GLARE [None]
  - INTERVERTEBRAL DISC DEGENERATION [None]
  - PALPITATIONS [None]
  - CHEST PAIN [None]
  - ANXIETY [None]
  - CLINICALLY ISOLATED SYNDROME [None]
  - MOOD SWINGS [None]
  - DYSMENORRHOEA [None]
  - BLINDNESS UNILATERAL [None]
  - OPTIC NEURITIS [None]
  - STRESS [None]
  - IRRITABILITY [None]
  - ARTHRALGIA [None]
